FAERS Safety Report 5781491-0 (Version None)
Quarter: 2008Q2

REPORT INFORMATION
  Report Type: 
  Country: None (occurrence: None)
  Receive Date: 20080623
  Receipt Date: 20080611
  Transmission Date: 20081010
  Serious: Yes (Hospitalization)
  Sender: FDA-Public Use
  Company Number: US-BAYER-200818740GPV

PATIENT
  Age: 61 Year
  Sex: Female

DRUGS (15)
  1. CAMPATH [Suspect]
     Indication: CHRONIC LYMPHOCYTIC LEUKAEMIA
     Dosage: UNIT DOSE: 3 MG
     Route: 042
     Dates: start: 20080311, end: 20080311
  2. CAMPATH [Suspect]
     Dosage: UNIT DOSE: 30 MG
     Route: 042
     Dates: start: 20080313, end: 20080313
  3. CAMPATH [Suspect]
     Dosage: UNIT DOSE: 30 MG
     Route: 042
     Dates: start: 20080512, end: 20080512
  4. CAMPATH [Suspect]
     Dosage: UNIT DOSE: 10 MG
     Route: 042
     Dates: start: 20080414, end: 20080416
  5. CAMPATH [Suspect]
     Dosage: UNIT DOSE: 10 MG
     Route: 042
     Dates: start: 20080317, end: 20080319
  6. CAMPATH [Suspect]
     Dosage: UNIT DOSE: 10 MG
     Route: 042
     Dates: start: 20080312, end: 20080312
  7. FLUDARA [Suspect]
     Indication: CHRONIC LYMPHOCYTIC LEUKAEMIA
     Dosage: UNIT DOSE: 45 MG
     Route: 042
     Dates: start: 20080512, end: 20080512
  8. FLUDARA [Suspect]
     Dosage: UNIT DOSE: 15 MG
     Route: 042
     Dates: start: 20080414, end: 20080416
  9. FLUDARA [Suspect]
     Route: 042
     Dates: start: 20080317, end: 20080319
  10. BACTRIM [Concomitant]
     Indication: DRUG USE FOR UNKNOWN INDICATION
     Dates: start: 20080311
  11. ACYCLOVIR [Concomitant]
     Indication: DRUG USE FOR UNKNOWN INDICATION
     Dates: start: 20080311
  12. ACETAMINOPHEN [Concomitant]
     Indication: DRUG USE FOR UNKNOWN INDICATION
     Dates: start: 20080512, end: 20080512
  13. SOLU-CORTEF [Concomitant]
     Indication: DRUG USE FOR UNKNOWN INDICATION
     Dates: start: 20080512, end: 20080512
  14. TAVEGYL [Concomitant]
     Indication: DRUG USE FOR UNKNOWN INDICATION
     Dates: start: 20080512, end: 20080512
  15. PETIDIN [Concomitant]
     Indication: DRUG USE FOR UNKNOWN INDICATION
     Dates: start: 20080512, end: 20080512

REACTIONS (2)
  - HYPOTENSION [None]
  - PYREXIA [None]
